FAERS Safety Report 12131968 (Version 3)
Quarter: 2016Q2

REPORT INFORMATION
  Report Type: Spontaneous
  Country: US (occurrence: US)
  Receive Date: 20160301
  Receipt Date: 20160507
  Transmission Date: 20160815
  Serious: Yes (Hospitalization)
  Sender: FDA-Public Use
  Company Number: US-JNJFOC-20160214858

PATIENT
  Age: 45 Year
  Sex: Male

DRUGS (10)
  1. ALEVE [Suspect]
     Active Substance: NAPROXEN SODIUM
     Indication: BACK PAIN
     Route: 065
  2. DILTIAZEM [Concomitant]
     Active Substance: DILTIAZEM
     Indication: HYPERTENSION
     Route: 065
  3. XARELTO [Suspect]
     Active Substance: RIVAROXABAN
     Indication: ATRIAL FIBRILLATION
     Dosage: VARYING DOSES OF 10MG AND 20MG.
     Route: 048
     Dates: start: 20140116, end: 20140804
  4. LANTUS [Concomitant]
     Active Substance: INSULIN GLARGINE
     Indication: PRODUCT USED FOR UNKNOWN INDICATION
     Route: 065
     Dates: start: 2013
  5. XARELTO [Suspect]
     Active Substance: RIVAROXABAN
     Indication: THROMBOSIS PROPHYLAXIS
     Dosage: VARYING DOSES OF 10MG AND 20MG.
     Route: 048
     Dates: start: 20140116, end: 20140804
  6. ASPIRIN. [Suspect]
     Active Substance: ASPIRIN
     Indication: PRODUCT USED FOR UNKNOWN INDICATION
     Route: 065
  7. BISOPROLOL [Concomitant]
     Active Substance: BISOPROLOL
     Indication: PRODUCT USED FOR UNKNOWN INDICATION
     Route: 065
     Dates: start: 2014
  8. HUMALOG [Concomitant]
     Active Substance: INSULIN LISPRO
     Indication: DIABETES MELLITUS
     Route: 065
     Dates: start: 2013
  9. XARELTO [Suspect]
     Active Substance: RIVAROXABAN
     Indication: CEREBROVASCULAR ACCIDENT PROPHYLAXIS
     Dosage: VARYING DOSES OF 10MG AND 20MG.
     Route: 048
     Dates: start: 20140116, end: 20140804
  10. PANTOPRAZOLE [Concomitant]
     Active Substance: PANTOPRAZOLE SODIUM
     Indication: PRODUCT USED FOR UNKNOWN INDICATION
     Route: 065

REACTIONS (1)
  - Oesophageal varices haemorrhage [Recovering/Resolving]

NARRATIVE: CASE EVENT DATE: 20140803
